FAERS Safety Report 5377324-7 (Version None)
Quarter: 2007Q3

REPORT INFORMATION
  Report Type: 
  Country: None (occurrence: None)
  Receive Date: 20070703
  Receipt Date: 20070628
  Transmission Date: 20080115
  Serious: Yes (Other)
  Sender: FDA-Public Use
  Company Number: JP-ASTRAZENECA-2007AP03890

PATIENT
  Age: 65 Year
  Sex: Female

DRUGS (3)
  1. SEROQUEL [Suspect]
     Route: 048
     Dates: start: 20070506, end: 20070614
  2. NIVADIL [Concomitant]
     Route: 048
     Dates: start: 20070506, end: 20070608
  3. DEPAKENE [Concomitant]
     Route: 048
     Dates: start: 20070601, end: 20070608

REACTIONS (2)
  - LIVER DISORDER [None]
  - RASH [None]
